FAERS Safety Report 21008284 (Version 1)
Quarter: 2022Q2

REPORT INFORMATION
  Report Type: Spontaneous
  Country: VN (occurrence: VN)
  Receive Date: 20220627
  Receipt Date: 20220627
  Transmission Date: 20220721
  Serious: Yes (Death, Hospitalization, Other)
  Sender: FDA-Public Use
  Company Number: VN-BoehringerIngelheim-2022-BI-176919

PATIENT
  Age: 76 Year
  Sex: Male
  Weight: 56 kg

DRUGS (1)
  1. PRADAXA [Suspect]
     Active Substance: DABIGATRAN ETEXILATE MESYLATE
     Indication: Atrial fibrillation
     Route: 048
     Dates: start: 20220615, end: 20220616

REACTIONS (2)
  - Arteriovenous malformation [Fatal]
  - Epistaxis [Unknown]

NARRATIVE: CASE EVENT DATE: 20220616
